FAERS Safety Report 8260693 (Version 2)
Quarter: 2012Q4

REPORT INFORMATION
  Report Type: 
  Country: US (occurrence: US)
  Receive Date: 20111123
  Receipt Date: 20120920
  Transmission Date: 20130627
  Serious: Yes (Other)
  Sender: FDA-Public Use
  Company Number: US-US-EMD SERONO, INC.-7097217

PATIENT
  Age: 40 None
  Sex: Male

DRUGS (4)
  1. REBIF [Suspect]
     Indication: MULTIPLE SCLEROSIS
     Route: 058
     Dates: start: 20110802
  2. ENALAPRIL [Concomitant]
     Indication: HYPERTENSION
     Route: 048
  3. NORVASC [Concomitant]
     Indication: HYPERTENSION
     Route: 048
  4. ZYRTEC [Concomitant]
     Indication: ASTHMA
     Route: 048

REACTIONS (8)
  - Ophthalmoplegia [Recovered/Resolved]
  - Multiple sclerosis relapse [Recovered/Resolved]
  - Blood potassium increased [Unknown]
  - Insomnia [Recovered/Resolved]
  - Rhinorrhoea [Not Recovered/Not Resolved]
  - Cough [Not Recovered/Not Resolved]
  - Lacrimation increased [Not Recovered/Not Resolved]
  - Injection site erythema [Not Recovered/Not Resolved]
